FAERS Safety Report 8988186 (Version 1)
Quarter: 2012Q4

REPORT INFORMATION
  Report Type: 
  Country: GB (occurrence: GB)
  Receive Date: 20121227
  Receipt Date: 20121227
  Transmission Date: 20130627
  Serious: Yes (Other)
  Sender: FDA-Public Use
  Company Number: GB-JNJFOC-20121209183

PATIENT
  Age: 76 Year
  Sex: Female

DRUGS (6)
  1. HALOPERIDOL [Suspect]
     Indication: PSYCHOTIC DISORDER
     Route: 048
     Dates: start: 20121109
  2. CALCIUM [Concomitant]
     Indication: BONE DISORDER
     Route: 048
  3. COD LIVER OIL [Concomitant]
     Indication: PRODUCT USED FOR UNKNOWN INDICATION
     Route: 065
  4. IRON [Concomitant]
     Indication: PRODUCT USED FOR UNKNOWN INDICATION
     Route: 048
  5. HRT (NOS) [Concomitant]
     Indication: BREAST CANCER
     Route: 065
  6. TAMOXIFEN [Concomitant]
     Indication: BREAST CANCER
     Route: 065

REACTIONS (5)
  - Slow response to stimuli [Recovering/Resolving]
  - Feeling abnormal [Recovering/Resolving]
  - Hangover [Recovering/Resolving]
  - Feeling hot [Recovering/Resolving]
  - Fatigue [Recovering/Resolving]
